FAERS Safety Report 8010130 (Version 11)
Quarter: 2013Q4

REPORT INFORMATION
  Report Type: Spontaneous
  Country: US (occurrence: US)
  Receive Date: 20110627
  Receipt Date: 20131206
  Transmission Date: 20140711
  Serious: Yes (Other)
  Sender: FDA-Public Use
  Company Number: PHEH2011US00494

PATIENT
  Sex: Female

DRUGS (1)
  1. ZOMETA [Suspect]
     Dosage: 4 MG, QMO
     Route: 042
     Dates: end: 200801

REACTIONS (51)
  - Osteonecrosis of jaw [Unknown]
  - Pain [Unknown]
  - Injury [Unknown]
  - Emotional distress [Unknown]
  - Deformity [Unknown]
  - Bone loss [Unknown]
  - Loose tooth [Unknown]
  - Rib fracture [Recovering/Resolving]
  - Musculoskeletal chest pain [Unknown]
  - Intervertebral disc protrusion [Unknown]
  - Spinal column stenosis [Unknown]
  - Intervertebral disc degeneration [Unknown]
  - Intervertebral disc space narrowing [Unknown]
  - Back pain [Unknown]
  - Fall [Unknown]
  - Abdominal mass [Unknown]
  - Bone lesion [Unknown]
  - Dyspnoea exertional [Unknown]
  - Chest pain [Unknown]
  - Anaemia [Unknown]
  - Breast pain [Unknown]
  - Insomnia [Unknown]
  - Metastases to lymph nodes [Unknown]
  - Anxiety [Unknown]
  - Local swelling [Unknown]
  - Tooth disorder [Unknown]
  - Gingival pain [Unknown]
  - Gingival disorder [Unknown]
  - Fungal skin infection [Unknown]
  - Arthritis [Unknown]
  - Metastases to spine [Unknown]
  - Inflammation [Unknown]
  - Bacterial disease carrier [Unknown]
  - Periodontal disease [Unknown]
  - Tooth abscess [Unknown]
  - Exposed bone in jaw [Unknown]
  - Onychomycosis [Unknown]
  - Rotator cuff syndrome [Unknown]
  - Gingival swelling [Unknown]
  - Contusion [Unknown]
  - Intestinal mass [Unknown]
  - Productive cough [Unknown]
  - Rhinorrhoea [Unknown]
  - Facial pain [Unknown]
  - Nasal congestion [Unknown]
  - Fatigue [Unknown]
  - Hot flush [Unknown]
  - Diarrhoea [Unknown]
  - Pyrexia [Unknown]
  - Myalgia [Unknown]
  - Headache [Unknown]
